FAERS Safety Report 4951561-5 (Version None)
Quarter: 2006Q1

REPORT INFORMATION
  Report Type: 
  Country: None (occurrence: None)
  Receive Date: 20060323
  Receipt Date: 20060314
  Transmission Date: 20060701
  Serious: Yes (Other)
  Sender: FDA-Public Use
  Company Number: PHEH2006US03444

PATIENT
  Sex: Male

DRUGS (10)
  1. AREDIA [Suspect]
     Indication: METASTASES TO BONE
     Dates: start: 20020404
  2. ZOMETA [Suspect]
     Indication: METASTASES TO BONE
     Dosage: UNK, UNK
     Dates: start: 20020404
  3. TAXOTERE [Concomitant]
     Dates: start: 20001215
  4. TAXOL [Concomitant]
  5. DIFLUCAN [Concomitant]
  6. MS CONTIN [Concomitant]
  7. LOVENOX [Concomitant]
  8. MSIR [Concomitant]
  9. ZOLOFT [Concomitant]
  10. PRILOSEC [Concomitant]

REACTIONS (10)
  - BONE DEBRIDEMENT [None]
  - BONE DISORDER [None]
  - DENTAL OPERATION [None]
  - EATING DISORDER [None]
  - IMPAIRED HEALING [None]
  - INFECTION [None]
  - OSTEONECROSIS [None]
  - PAIN IN JAW [None]
  - TOOTH EXTRACTION [None]
  - TOOTHACHE [None]
